FAERS Safety Report 6127449-3 (Version None)
Quarter: 2009Q1

REPORT INFORMATION
  Report Type: 
  Country: None (occurrence: None)
  Receive Date: 20090323
  Receipt Date: 20090311
  Transmission Date: 20090719
  Serious: Yes (Other)
  Sender: FDA-Public Use
  Company Number: IT-RANBAXY-2009RR-22568

PATIENT
  Sex: Female

DRUGS (2)
  1. PARACETAMOL [Suspect]
  2. AMOXICILLIN [Suspect]

REACTIONS (1)
  - EXTRAPYRAMIDAL DISORDER [None]
